FAERS Safety Report 5834898-7 (Version None)
Quarter: 2008Q3

REPORT INFORMATION
  Report Type: 
  Country: None (occurrence: None)
  Receive Date: 20080804
  Receipt Date: 20080716
  Transmission Date: 20090109
  Serious: Yes (Death, Hospitalization)
  Sender: FDA-Public Use
  Company Number: 6044060

PATIENT
  Age: 27 Year
  Sex: Female

DRUGS (3)
  1. BISOPROLOL FUMARATE [Suspect]
     Indication: DRUG USE FOR UNKNOWN INDICATION
     Dosage: ORAL
     Route: 048
     Dates: start: 20040101
  2. ATENOLOL [Concomitant]
  3. WARFARIN SODIUM [Concomitant]

REACTIONS (5)
  - CAESAREAN SECTION [None]
  - CARDIAC VALVE REPLACEMENT COMPLICATION [None]
  - COMA [None]
  - DRUG EXPOSURE DURING PREGNANCY [None]
  - LEFT VENTRICULAR FAILURE [None]
